FAERS Safety Report 11030553 (Version 1)
Quarter: 2015Q2

REPORT INFORMATION
  Report Type: Spontaneous
  Country: US (occurrence: None)
  Receive Date: 20150414
  Receipt Date: 20150414
  Transmission Date: 20150821
  Serious: Yes (Other)
  Sender: FDA-Public Use
  Company Number: None

PATIENT
  Age: 56 Year
  Sex: Female
  Weight: 109.32 kg

DRUGS (1)
  1. HYDROXYCHLOROQUINE 200 MG [Suspect]
     Active Substance: HYDROXYCHLOROQUINE
     Indication: UNDIFFERENTIATED CONNECTIVE TISSUE DISEASE
     Route: 048
     Dates: start: 201503, end: 20150407

REACTIONS (2)
  - Eye pruritus [None]
  - Urticaria [None]

NARRATIVE: CASE EVENT DATE: 20150407
